FAERS Safety Report 13118756 (Version 3)
Quarter: 2017Q1

REPORT INFORMATION
  Report Type: Spontaneous
  Country: SI (occurrence: SI)
  Receive Date: 20170116
  Receipt Date: 20170215
  Transmission Date: 20170428
  Serious: Yes (Death)
  Sender: FDA-Public Use
  Company Number: US-ASTRAZENECA-2017SE04050

PATIENT
  Age: 24 Day
  Sex: Female
  Weight: 3 kg

DRUGS (33)
  1. GLUCOSE [Concomitant]
     Active Substance: DEXTROSE
  2. FENTANIL [Concomitant]
     Active Substance: FENTANYL
  3. ANALGIN [Concomitant]
     Active Substance: METAMIZOLE SODIUM
  4. KALIJEV KLORID [Concomitant]
  5. KALIJEV FOSFATO [Concomitant]
  6. OSPEN [Concomitant]
     Active Substance: PENICILLIN V
  7. GARAMYCIN [Concomitant]
     Active Substance: GENTAMICIN SULFATE
  8. NATRIJEV KLORID [Concomitant]
  9. SPIRONOLAKTON [Concomitant]
     Active Substance: SPIRONOLACTONE
  10. DOPAMIN [Concomitant]
     Active Substance: DOPAMINE HYDROCHLORIDE
  11. NATRIJEV HIDROGENKARBONAT [Concomitant]
  12. SYNAGIS [Suspect]
     Active Substance: PALIVIZUMAB
     Indication: RESPIRATORY SYNCYTIAL VIRUS INFECTION
     Route: 030
     Dates: start: 20161216, end: 20161216
  13. SYNAGIS [Suspect]
     Active Substance: PALIVIZUMAB
     Indication: HEART DISEASE CONGENITAL
     Route: 030
     Dates: start: 20161216, end: 20161216
  14. VANKOMICIN [Concomitant]
  15. KLONIDIN [Concomitant]
  16. PROSTIN [Concomitant]
     Active Substance: ALPROSTADIL
  17. HARTMANN SOLUTION [Concomitant]
  18. CHOLECALCIFEROL [Concomitant]
     Active Substance: CHOLECALCIFEROL
  19. CONCENTRATED ERITROCITES [Concomitant]
  20. EXETAMIN [Concomitant]
  21. GLUCOSE-1-PHOSPHAT FRESENIUS [Concomitant]
  22. CALCIUM GLUCONATE. [Concomitant]
     Active Substance: CALCIUM GLUCONATE
  23. EDEMID [Concomitant]
     Active Substance: FUROSEMIDE
  24. KLORALHIDRAT [Concomitant]
  25. PANTOPRAZOL [Concomitant]
     Active Substance: PANTOPRAZOLE SODIUM
  26. MIDAZOLAM [Concomitant]
     Active Substance: MIDAZOLAM HYDROCHLORIDE
  27. RINGER SOLUTION [Concomitant]
  28. PARACETAMOL [Concomitant]
     Active Substance: ACETAMINOPHEN
  29. MAGNESIUM SULFATE. [Concomitant]
     Active Substance: MAGNESIUM SULFATE
  30. KALCIJEV GLICEROFOSFAT [Concomitant]
  31. PIPERACILIN/TAZOBAKTAM [Concomitant]
  32. AMPICILLINA [Concomitant]
     Active Substance: AMPICILLIN SODIUM
  33. VECURONIUM INRESA [Concomitant]

REACTIONS (4)
  - Infection [Fatal]
  - Shock [Fatal]
  - Multiple organ dysfunction syndrome [Fatal]
  - Haematochezia [Fatal]

NARRATIVE: CASE EVENT DATE: 20161217
